FAERS Safety Report 7748034-3 (Version None)
Quarter: 2011Q3

REPORT INFORMATION
  Report Type: 
  Country: None (occurrence: None)
  Receive Date: 20110913
  Receipt Date: 20110824
  Transmission Date: 20111222
  Serious: No
  Sender: FDA-Public Use
  Company Number: US-ALLERGAN-1110971US

PATIENT
  Age: 46 Year
  Sex: Female

DRUGS (3)
  1. LATISSE [Suspect]
     Indication: GROWTH OF EYELASHES
     Dosage: UNK
     Route: 061
     Dates: start: 20101001, end: 20110201
  2. LATISSE [Suspect]
     Dosage: UNK
     Route: 061
     Dates: start: 20110822
  3. LATISSE [Suspect]
     Dosage: UNK
     Route: 061

REACTIONS (3)
  - TRICHORRHEXIS [None]
  - MADAROSIS [None]
  - WRONG TECHNIQUE IN DRUG USAGE PROCESS [None]
